FAERS Safety Report 8269129-4 (Version None)
Quarter: 2012Q2

REPORT INFORMATION
  Report Type: 
  Country: None (occurrence: None)
  Receive Date: 20120409
  Receipt Date: 20120402
  Transmission Date: 20120825
  Serious: Yes (Disabling, Other)
  Sender: FDA-Public Use
  Company Number: US-TEVA-331643USA

PATIENT
  Sex: Female
  Weight: 95.34 kg

DRUGS (6)
  1. WATER PILL [Concomitant]
     Indication: FLUID RETENTION
     Route: 048
  2. METHADONE HCL [Concomitant]
     Indication: PAIN
     Dosage: 20 MILLIGRAM;
     Route: 048
  3. ACTIQ [Suspect]
     Indication: PAIN
  4. ALPRAZOLAM [Concomitant]
     Indication: ANXIETY
     Route: 048
  5. ACTIQ [Suspect]
     Indication: FIBROMYALGIA
     Dosage: 2400 MICROGRAM;
     Route: 002
     Dates: start: 20050101, end: 20120330
  6. CARISOPRODOL [Concomitant]
     Indication: INSOMNIA
     Route: 048
     Dates: start: 20070101

REACTIONS (6)
  - MALAISE [None]
  - IMPAIRED DRIVING ABILITY [None]
  - FEAR [None]
  - OFF LABEL USE [None]
  - BEDRIDDEN [None]
  - PAIN [None]
